FAERS Safety Report 22360266 (Version 2)
Quarter: 2023Q2

REPORT INFORMATION
  Report Type: Spontaneous
  Country: US (occurrence: US)
  Receive Date: 20230524
  Receipt Date: 20230626
  Transmission Date: 20230722
  Serious: No
  Sender: FDA-Public Use
  Company Number: US-SANOFI-01625211

PATIENT
  Sex: Female
  Weight: 81.6 kg

DRUGS (1)
  1. NASACORT ALLERGY 24HR [Suspect]
     Active Substance: TRIAMCINOLONE ACETONIDE
     Indication: Epistaxis
     Dosage: UNK
     Route: 045

REACTIONS (1)
  - Product prescribing issue [Unknown]
